FAERS Safety Report 8407982-1 (Version None)
Quarter: 2012Q2

REPORT INFORMATION
  Report Type: 
  Country: None (occurrence: None)
  Receive Date: 20120601
  Receipt Date: 20120601
  Transmission Date: 20120825
  Serious: Yes (Hospitalization)
  Sender: FDA-Public Use
  Company Number: None

PATIENT
  Age: 60 Year
  Sex: Male
  Weight: 34.5 kg

DRUGS (12)
  1. HALDOL [Concomitant]
  2. FAMOTIDINE [Concomitant]
  3. TELAPREVIR [Suspect]
     Indication: HEPATITIS C
     Dosage: 1125MG  TID PO (DOSED FOR EFAVIRANZ INTERACTIO
     Route: 048
     Dates: start: 20120508
  4. ASPIRIN [Concomitant]
  5. RIBAVIRIN [Suspect]
     Indication: HEPATITIS C
     Dosage: 1200MG/D PO
     Route: 048
     Dates: start: 20120508
  6. LEVOTHYROXINE SODIUM [Concomitant]
  7. IBUPROFEN [Concomitant]
  8. PEG-INTRON [Suspect]
     Indication: HEPATITIS C
     Dosage: 180MCG/WEEK SQ
     Route: 058
     Dates: start: 20120508
  9. ATRIPLA (EMTRICITABINE/TENOFOVIR/EFAVIRENZ) [Concomitant]
  10. COGENTIN [Concomitant]
  11. DIAZEPAM [Concomitant]
  12. CALCIUM CARBONATE [Concomitant]

REACTIONS (1)
  - SMALL INTESTINAL OBSTRUCTION [None]
